FAERS Safety Report 10028372 (Version 1)
Quarter: 2014Q1

REPORT INFORMATION
  Report Type: Spontaneous
  Country: US (occurrence: US)
  Receive Date: 20140321
  Receipt Date: 20140321
  Transmission Date: 20141002
  Serious: Yes (Other)
  Sender: FDA-Public Use
  Company Number: US-TEVA-470502USA

PATIENT
  Age: 17 Year
  Sex: Female
  Weight: 59.02 kg

DRUGS (1)
  1. PLAN B ONE-STEP [Suspect]
     Indication: POST COITAL CONTRACEPTION
     Dosage: 1.5 MILLIGRAM DAILY;
     Route: 048
     Dates: start: 20140129, end: 20140129

REACTIONS (4)
  - Pregnancy after post coital contraception [Unknown]
  - Drug ineffective [Unknown]
  - Metrorrhagia [Recovered/Resolved]
  - Menstruation delayed [Not Recovered/Not Resolved]
